FAERS Safety Report 10550491 (Version 1)
Quarter: 2014Q4

REPORT INFORMATION
  Report Type: Spontaneous
  Country: US (occurrence: US)
  Receive Date: 20141029
  Receipt Date: 20141029
  Transmission Date: 20150529
  Serious: No
  Sender: FDA-Public Use
  Company Number: US-TEVA-487578USA

PATIENT
  Sex: Female

DRUGS (3)
  1. PROVIGIL [Suspect]
     Active Substance: MODAFINIL
     Dosage: PARTIAL DOSE
     Dates: start: 201404
  2. NAPROSYN [Concomitant]
     Active Substance: NAPROXEN
  3. PROVIGIL [Suspect]
     Active Substance: MODAFINIL
     Dosage: 200 MG PER DAY
     Dates: start: 2014

REACTIONS (2)
  - Intentional product misuse [Unknown]
  - Alopecia [Unknown]

NARRATIVE: CASE EVENT DATE: 2014
